FAERS Safety Report 18514883 (Version 2)
Quarter: 2021Q4

REPORT INFORMATION
  Report Type: Spontaneous
  Country: US (occurrence: US)
  Receive Date: 20201118
  Receipt Date: 20211129
  Transmission Date: 20220303
  Serious: No
  Sender: FDA-Public Use
  Company Number: US-UCBSA-2020003718

PATIENT
  Sex: Male

DRUGS (4)
  1. VIMPAT [Suspect]
     Active Substance: LACOSAMIDE
     Indication: Product used for unknown indication
     Dosage: 200 MILLIGRAM, 2X/DAY (BID)
     Route: 048
  2. DIAZEPAM [Concomitant]
     Active Substance: DIAZEPAM
     Indication: Product used for unknown indication
  3. LORATADINE [Concomitant]
     Active Substance: LORATADINE
     Indication: Product used for unknown indication
  4. CITALOPRAM [Concomitant]
     Active Substance: CITALOPRAM HYDROBROMIDE
     Indication: Product used for unknown indication

REACTIONS (9)
  - Focal dyscognitive seizures [Unknown]
  - Seizure [Unknown]
  - Treatment noncompliance [Unknown]
  - Product dose omission issue [Unknown]
  - Fall [Unknown]
  - Memory impairment [Unknown]
  - Disturbance in attention [Unknown]
  - Depressed mood [Unknown]
  - Anxiety [Unknown]
